FAERS Safety Report 9838492 (Version 1)
Quarter: 2013Q4

REPORT INFORMATION
  Report Type: Spontaneous
  Country: US (occurrence: None)
  Receive Date: 20131206
  Receipt Date: 20131206
  Transmission Date: 20140711
  Serious: Yes (Hospitalization)
  Sender: FDA-Public Use
  Company Number: 377572

PATIENT
  Age: 21 Year
  Sex: Male
  Weight: 72.6 kg

DRUGS (1)
  1. NOVOLOG [Suspect]
     Indication: TYPE 1 DIABETES MELLITUS
     Dosage: SLIDING SCALE, SUBCUTAN.-PUMP
     Route: 058

REACTIONS (2)
  - Drug ineffective [None]
  - Diabetic ketoacidosis [None]
